FAERS Safety Report 16058359 (Version 1)
Quarter: 2019Q1

REPORT INFORMATION
  Report Type: Report from Study
  Country: ES (occurrence: ES)
  Receive Date: 20190311
  Receipt Date: 20190311
  Transmission Date: 20190418
  Serious: Yes (Hospitalization)
  Sender: FDA-Public Use
  Company Number: ES-TEVA-2019-ES-1021065

PATIENT
  Age: 83 Year
  Sex: Male

DRUGS (6)
  1. ESPIRONOLACTONA (326A) [Suspect]
     Active Substance: SPIRONOLACTONE
     Indication: ASCITES
     Dosage: 200 MILLIGRAM DAILY;
     Route: 048
     Dates: start: 20180710, end: 20180827
  2. FUROSEMIDA (1615A) [Suspect]
     Active Substance: FUROSEMIDE
     Indication: CARDIAC FAILURE
     Dosage: 120 MILLIGRAM DAILY;
     Route: 048
     Dates: start: 20100318
  3. ENALAPRIL MALEATO (2142MA) [Suspect]
     Active Substance: ENALAPRIL MALEATE
     Indication: HYPERTENSION
     Dosage: 2.5 MILLIGRAM DAILY;
     Route: 048
     Dates: start: 20111213, end: 20180827
  4. CARVEDILOL (2431A) [Concomitant]
     Active Substance: CARVEDILOL
     Indication: CARDIAC FAILURE
     Dosage: 6.25 MILLIGRAM DAILY;
     Route: 048
     Dates: start: 20111213, end: 20180827
  5. ELIQUIS 2,5 MG COMPRIMIDOS RECUBIERTOS CON PELICULA, 20 COMPRIMIDOS [Concomitant]
     Indication: ATRIAL FIBRILLATION
     Route: 048
     Dates: start: 20160822
  6. OMEPRAZOL (2141A) [Concomitant]
     Active Substance: OMEPRAZOLE
     Indication: PROPHYLAXIS AGAINST GASTROINTESTINAL ULCER
     Dosage: 20 MILLIGRAM DAILY;
     Route: 048
     Dates: start: 20080716

REACTIONS (1)
  - Acute kidney injury [Recovered/Resolved]

NARRATIVE: CASE EVENT DATE: 20180827
